FAERS Safety Report 4340243-9 (Version None)
Quarter: 2004Q1

REPORT INFORMATION
  Report Type: 
  Country: None (occurrence: None)
  Receive Date: 20040329
  Receipt Date: 20040102
  Transmission Date: 20041129
  Serious: No
  Sender: FDA-Public Use
  Company Number: 04P-163-0246156-00

PATIENT
  Age: 80 Year
  Sex: Male

DRUGS (6)
  1. HUMIRA [Suspect]
     Indication: OSTEOARTHRITIS
     Dosage: SEE IMAGE
     Route: 058
     Dates: start: 20030917, end: 20031101
  2. HUMIRA [Suspect]
     Indication: RHEUMATOID ARTHRITIS
     Dosage: SEE IMAGE
     Route: 058
     Dates: start: 20030917, end: 20031101
  3. HUMIRA [Suspect]
     Indication: OSTEOARTHRITIS
     Dosage: SEE IMAGE
     Route: 058
     Dates: start: 20031101
  4. HUMIRA [Suspect]
     Indication: RHEUMATOID ARTHRITIS
     Dosage: SEE IMAGE
     Route: 058
     Dates: start: 20031101
  5. PREDNISONE [Concomitant]
  6. SUPPLEMENTS [Concomitant]

REACTIONS (1)
  - DIARRHOEA [None]
